FAERS Safety Report 4286414-1 (Version None)
Quarter: 2004Q1

REPORT INFORMATION
  Report Type: 
  Country: None (occurrence: None)
  Receive Date: 20040206
  Receipt Date: 20040126
  Transmission Date: 20041129
  Serious: Yes (Hospitalization)
  Sender: FDA-Public Use
  Company Number: FR-BRISTOL-MYERS SQUIBB COMPANY-12487716

PATIENT
  Age: 5 Month
  Sex: Male

DRUGS (2)
  1. MUCOMYST [Suspect]
     Indication: NASOPHARYNGITIS
     Dosage: 100MG/5ML POWDER FOR ORAL SUSPENSION.
     Route: 048
     Dates: start: 20031202
  2. MUCOMYST [Suspect]
     Indication: OTITIS MEDIA
     Dosage: 100MG/5ML POWDER FOR ORAL SUSPENSION.
     Route: 048
     Dates: start: 20031202

REACTIONS (3)
  - BRONCHIOLITIS [None]
  - CONJUNCTIVITIS INFECTIVE [None]
  - RHINITIS [None]
